FAERS Safety Report 20166876 (Version 1)
Quarter: 2021Q4

REPORT INFORMATION
  Report Type: Spontaneous
  Country: BR (occurrence: BR)
  Receive Date: 20211209
  Receipt Date: 20211209
  Transmission Date: 20220303
  Serious: Yes (Other)
  Sender: FDA-Public Use
  Company Number: BR-TAKEDA-2021TUS078220

PATIENT
  Sex: Female

DRUGS (1)
  1. DEXILANT [Suspect]
     Active Substance: DEXLANSOPRAZOLE
     Indication: Gastrooesophageal reflux disease
     Dosage: 60 MILLIGRAM, QD
     Route: 065

REACTIONS (6)
  - Internal haemorrhage [Unknown]
  - Off label use [Unknown]
  - Abdominal pain upper [Unknown]
  - Anxiety [Unknown]
  - Constipation [Unknown]
  - Abdominal pain [Unknown]
